FAERS Safety Report 17133116 (Version 1)
Quarter: 2019Q4

REPORT INFORMATION
  Report Type: Spontaneous
  Country: US (occurrence: US)
  Receive Date: 20191209
  Receipt Date: 20191209
  Transmission Date: 20200122
  Serious: Yes (Other)
  Sender: FDA-Public Use
  Company Number: None

PATIENT
  Age: 67 Year
  Sex: Female
  Weight: 53.55 kg

DRUGS (6)
  1. FISH OIL [Concomitant]
     Active Substance: FISH OIL
  2. FIORICET [Concomitant]
     Active Substance: ACETAMINOPHEN\BUTALBITAL\CAFFEINE
  3. MULTI VITAMIN [Concomitant]
     Active Substance: VITAMINS
  4. NORTRIPTYLINE [Concomitant]
     Active Substance: NORTRIPTYLINE
  5. GARLIC. [Concomitant]
     Active Substance: GARLIC
  6. GOLYTELY [Suspect]
     Active Substance: POLYETHYLENE GLYCOL 3350\POTASSIUM CHLORIDE\SODIUM BICARBONATE\SODIUM CHLORIDE\SODIUM SULFATE ANHYDROUS
     Indication: COLONOSCOPY
     Dosage: ?          OTHER FREQUENCY:PREP FOR COLONSOCP;?
     Route: 048
     Dates: start: 20191204, end: 20191205

REACTIONS (3)
  - Blood pressure increased [None]
  - Product formulation issue [None]
  - Migraine [None]

NARRATIVE: CASE EVENT DATE: 20191205
